FAERS Safety Report 5403893-4 (Version None)
Quarter: 2007Q3

REPORT INFORMATION
  Report Type: 
  Country: None (occurrence: None)
  Receive Date: 20070731
  Receipt Date: 20070731
  Transmission Date: 20080115
  Serious: Yes (Disabling)
  Sender: FDA-Public Use
  Company Number: None

PATIENT
  Age: 68 Year
  Sex: Male
  Weight: 119 kg

DRUGS (30)
  1. OXYCODONE HCL [Suspect]
     Indication: PROCEDURAL PAIN
     Dosage: 10MG EVERY 2 HOURS PRN PO
     Route: 048
     Dates: start: 20070409, end: 20070416
  2. ACETAMINOPHEN [Concomitant]
  3. ALBUTEROL [Concomitant]
  4. AMLODIPINE [Concomitant]
  5. ASCORBIC ACID [Concomitant]
  6. ASPIRIN [Concomitant]
  7. ATENOLOL [Concomitant]
  8. ATORVASTATIN CALCIUM [Concomitant]
  9. CEFAZOLIN [Concomitant]
  10. CELECOXIB [Concomitant]
  11. CLONIDINE [Concomitant]
  12. DOCUSATE [Concomitant]
  13. ESOMEPRAZOLE MAGNESIUM [Concomitant]
  14. FENTANYL [Concomitant]
  15. FUROSEMIDE [Concomitant]
  16. GLYBURIDE [Concomitant]
  17. TRIAMTERENE AND HYDROCHLOROTHIAZIDE [Concomitant]
  18. INSULIN DETEMIR [Concomitant]
  19. REGULAR INSULIN [Concomitant]
  20. IPRATROPIUM BROMIDE [Concomitant]
  21. LISINOPRIL [Concomitant]
  22. LYSINE [Concomitant]
  23. METFORMIN HCL [Concomitant]
  24. MIDAZOLAM [Concomitant]
  25. MULTI-VITAMIN [Concomitant]
  26. NICOTINE [Concomitant]
  27. WARFARIN SODIUM [Concomitant]
  28. RANITIDINE [Concomitant]
  29. PREGABALIN [Concomitant]
  30. MORPHINE [Concomitant]

REACTIONS (3)
  - POST PROCEDURAL COMPLICATION [None]
  - RESPIRATORY DEPRESSION [None]
  - UNRESPONSIVE TO STIMULI [None]
